FAERS Safety Report 25739968 (Version 2)
Quarter: 2025Q4

REPORT INFORMATION
  Report Type: Report from Study
  Country: US (occurrence: US)
  Receive Date: 20250829
  Receipt Date: 20251017
  Transmission Date: 20260118
  Serious: Yes (Other)
  Sender: EISAI
  Company Number: US-Eisai-EC-2025-195577

PATIENT
  Age: 61 Year
  Sex: Female
  Weight: 79.3 kg

DRUGS (5)
  1. LECANEMAB [Suspect]
     Active Substance: LECANEMAB
     Indication: Cognitive disorder
     Route: 042
     Dates: start: 20250124, end: 20250207
  2. LECANEMAB [Suspect]
     Active Substance: LECANEMAB
     Route: 042
     Dates: start: 20250307
  3. CHOLECALCIFEROL [Concomitant]
     Active Substance: CHOLECALCIFEROL
     Indication: Prophylaxis
     Dates: start: 201311
  4. FLUTICASONE [Concomitant]
     Active Substance: FLUTICASONE
     Indication: Hypersensitivity
     Dosage: 50 INHALATION
     Dates: start: 202303
  5. ESCITALOPRAM [Concomitant]
     Active Substance: ESCITALOPRAM OXALATE
     Dates: start: 202409

REACTIONS (2)
  - Mental status changes [Recovered/Resolved]
  - Syncope [Recovered/Resolved]

NARRATIVE: CASE EVENT DATE: 20250124
